FAERS Safety Report 10153229 (Version 3)
Quarter: 2014Q2

REPORT INFORMATION
  Report Type: Spontaneous
  Country: US (occurrence: US)
  Receive Date: 20140505
  Receipt Date: 20140512
  Transmission Date: 20141212
  Serious: Yes (Other)
  Sender: FDA-Public Use
  Company Number: ALCN2014US002231

PATIENT
  Sex: 0

DRUGS (6)
  1. BSS [Suspect]
     Indication: SURGERY
     Dosage: UNK
     Route: 065
     Dates: start: 20140311, end: 20140311
  2. BSS [Suspect]
     Indication: OFF LABEL USE
  3. EPINEPHRINE [Concomitant]
     Indication: SURGERY
     Dosage: UNK
     Route: 047
     Dates: start: 20140311, end: 20140311
  4. EPINEPHRINE [Concomitant]
     Indication: OFF LABEL USE
  5. VANCOMYCIN [Concomitant]
     Indication: SURGERY
     Dosage: UNK
     Route: 047
     Dates: start: 20140311, end: 20140311
  6. VANCOMYCIN [Concomitant]
     Indication: OFF LABEL USE

REACTIONS (2)
  - Toxic anterior segment syndrome [Recovered/Resolved]
  - Off label use [Recovered/Resolved]
